FAERS Safety Report 4617077-0 (Version None)
Quarter: 2005Q1

REPORT INFORMATION
  Report Type: 
  Country: None (occurrence: None)
  Receive Date: 20050323
  Receipt Date: 20050311
  Transmission Date: 20050727
  Serious: Yes (Hospitalization)
  Sender: FDA-Public Use
  Company Number: US-GLAXOSMITHKLINE-A0549367A

PATIENT
  Age: 32 Year
  Sex: Male
  Weight: 82 kg

DRUGS (3)
  1. TUMS [Suspect]
     Route: 048
     Dates: end: 20050101
  2. HYDROCHLOROTHIAZIDE [Concomitant]
     Indication: HYPERTENSION
     Route: 048
  3. VASOTEC [Concomitant]
     Indication: HYPERTENSION
     Route: 048

REACTIONS (4)
  - DIABETES MELLITUS NON-INSULIN-DEPENDENT [None]
  - GASTROOESOPHAGEAL REFLUX DISEASE [None]
  - LOCAL SWELLING [None]
  - THYROID GLAND CANCER [None]
